FAERS Safety Report 10378505 (Version 2)
Quarter: 2014Q3

REPORT INFORMATION
  Report Type: Spontaneous
  Country: US (occurrence: US)
  Receive Date: 20140812
  Receipt Date: 20140909
  Transmission Date: 20150326
  Serious: No
  Sender: FDA-Public Use
  Company Number: US-JNJFOC-20140719263

PATIENT
  Sex: Female
  Weight: 64.86 kg

DRUGS (1)
  1. DURAGESIC [Suspect]
     Active Substance: FENTANYL
     Indication: PAIN
     Dosage: 100 UG/HR AND 25 UG/HR
     Route: 062

REACTIONS (2)
  - Product adhesion issue [Unknown]
  - Drug dose omission [Recovered/Resolved]
